FAERS Safety Report 4969224-9 (Version None)
Quarter: 2006Q2

REPORT INFORMATION
  Report Type: 
  Country: None (occurrence: None)
  Receive Date: 20060411
  Receipt Date: 20060404
  Transmission Date: 20061013
  Serious: Yes (Hospitalization)
  Sender: FDA-Public Use
  Company Number: FR-AVENTIS-200611238FR

PATIENT
  Age: 78 Year
  Sex: Male
  Weight: 63 kg

DRUGS (6)
  1. LASILIX [Suspect]
     Route: 048
  2. DIGOXIN [Suspect]
     Route: 048
  3. ESIDRIX [Suspect]
     Route: 048
  4. ESIDRIX [Suspect]
     Route: 048
  5. PREVISCAN [Concomitant]
     Route: 048
  6. CARDENSIEL [Concomitant]
     Route: 048

REACTIONS (9)
  - ATRIAL FIBRILLATION [None]
  - CARDIAC MURMUR [None]
  - CARDIOACTIVE DRUG LEVEL INCREASED [None]
  - CARDIOMEGALY [None]
  - DRUG INTERACTION [None]
  - FEMORAL ARTERIAL STENOSIS [None]
  - HYPOKALAEMIA [None]
  - OVERDOSE [None]
  - SUPERINFECTION [None]
